FAERS Safety Report 24267643 (Version 1)
Quarter: 2024Q3

REPORT INFORMATION
  Report Type: Spontaneous
  Country: US (occurrence: None)
  Receive Date: 20240829
  Receipt Date: 20240829
  Transmission Date: 20241017
  Serious: Yes (Hospitalization)
  Sender: Public
  Company Number: None

PATIENT
  Age: 80 Year
  Sex: Female
  Weight: 77.4 kg

DRUGS (1)
  1. PRIVIGEN [Suspect]
     Active Substance: HUMAN IMMUNOGLOBULIN G
     Indication: Chorioretinitis
     Dosage: OTHER FREQUENCY : EVERY 4 WEEKS;?
     Route: 042
     Dates: start: 20240408, end: 20240705

REACTIONS (5)
  - Headache [None]
  - Eye pain [None]
  - Dyspnoea [None]
  - Chest pain [None]
  - Fatigue [None]

NARRATIVE: CASE EVENT DATE: 20240709
